FAERS Safety Report 13608537 (Version 5)
Quarter: 2018Q2

REPORT INFORMATION
  Report Type: Report from Study
  Country: US (occurrence: US)
  Receive Date: 20170602
  Receipt Date: 20180515
  Transmission Date: 20180711
  Serious: Yes (Other)
  Sender: FDA-Public Use
  Company Number: PHEH2017US015957

PATIENT
  Sex: Female

DRUGS (1)
  1. AFINITOR [Suspect]
     Active Substance: EVEROLIMUS
     Indication: ASTROCYTOMA, LOW GRADE
     Dosage: 5 MG, QD
     Route: 048
     Dates: start: 20140711

REACTIONS (7)
  - Melanocytic naevus [Unknown]
  - Blood cholesterol increased [Unknown]
  - Arthralgia [Unknown]
  - Blood sodium decreased [Recovered/Resolved]
  - Malignant melanoma [Not Recovered/Not Resolved]
  - Vitamin D decreased [Unknown]
  - Bone pain [Unknown]
